FAERS Safety Report 19145699 (Version 3)
Quarter: 2021Q2

REPORT INFORMATION
  Report Type: Report from Study
  Country: CZ (occurrence: CZ)
  Receive Date: 20210416
  Receipt Date: 20210504
  Transmission Date: 20210717
  Serious: Yes (Hospitalization)
  Sender: FDA-Public Use
  Company Number: CZ-ROCHE-2808590

PATIENT
  Age: 43 Year
  Sex: Female
  Weight: 64.2 kg

DRUGS (51)
  1. OCRELIZUMAB. [Suspect]
     Active Substance: OCRELIZUMAB
     Dosage: OLE?WEEK 144
     Route: 042
     Dates: start: 20170515, end: 20170515
  2. OCRELIZUMAB. [Suspect]
     Active Substance: OCRELIZUMAB
     Dosage: OLE?WEEK 168
     Route: 042
     Dates: start: 20171123, end: 20171123
  3. NOVALGIN (CZECH REPUBLIC) [Concomitant]
     Dosage: 1 UNKNOWN
     Dates: start: 20210319, end: 20210401
  4. COLECALCIFEROLUM [Concomitant]
     Indication: VITAMIN D DEFICIENCY
     Dates: start: 20210319
  5. FLUCONAZOLE. [Concomitant]
     Active Substance: FLUCONAZOLE
     Indication: ORAL CANDIDIASIS
     Dates: start: 20210319, end: 20210401
  6. OCRELIZUMAB. [Suspect]
     Active Substance: OCRELIZUMAB
     Dosage: OLE?WEEK 72
     Route: 042
     Dates: start: 20151229, end: 20151229
  7. METHYLPREDNISOLONE. [Concomitant]
     Active Substance: METHYLPREDNISOLONE
     Dosage: OLE?WEEK 0?NEXT DOSE RECEIVED 26/AUG/2014 (OLE?WEEK 2),27/JAN/2015 9 (OLE?WEEK 24), 14/JUL/2015 (WEE
     Dates: start: 20140814, end: 20140814
  8. ATROVENT [Concomitant]
     Active Substance: IPRATROPIUM BROMIDE
     Dosage: 2 INHALATION
     Dates: start: 20210319
  9. KLACID [Concomitant]
     Active Substance: CLARITHROMYCIN
     Dosage: 1 UNKNOWN
     Dates: start: 20210319, end: 20210401
  10. SYNTOPHYLLIN [Concomitant]
     Dates: start: 20210319, end: 20210401
  11. PLACEBO [Suspect]
     Active Substance: UNSPECIFIED INGREDIENT
     Dosage: WEEK 72
     Route: 042
     Dates: start: 20140217, end: 20140217
  12. OCRELIZUMAB. [Suspect]
     Active Substance: OCRELIZUMAB
     Dosage: OLE?WEEK 240
     Route: 042
     Dates: start: 20190318, end: 20190318
  13. PARACETAMOLUM [Concomitant]
     Active Substance: ACETAMINOPHEN
     Indication: PREMEDICATION
     Dosage: BASELINE (WEEK 1)?NEXT DOSE RECEIVED ON 16/OCT/2012 (WEEK 2), 19/MAR/2013 (WEEK 24), 03/SEP/2013 9WE
     Dates: start: 20121002
  14. PARALEN (CZECH REPUBLIC) [Concomitant]
     Indication: PREMEDICATION
     Dosage: WEEK 72
     Dates: start: 20140217
  15. COMBAIR (CZECH REPUBLIC) [Concomitant]
     Indication: ASTHMA
  16. OCRELIZUMAB. [Suspect]
     Active Substance: OCRELIZUMAB
     Indication: RELAPSING-REMITTING MULTIPLE SCLEROSIS
     Dosage: OLE?WEEK 0?300 MG INFUSIONS ON DAYS 1 AND 15 FOR THE FIRST DOSE AND AS A SINGLE INFUSION OF 600 MG F
     Route: 042
     Dates: start: 20140814, end: 20140814
  17. OCRELIZUMAB. [Suspect]
     Active Substance: OCRELIZUMAB
     Dosage: OLE?WEEK 192
     Route: 042
     Dates: start: 20180426, end: 20180426
  18. METHYLPREDNISOLONE. [Concomitant]
     Active Substance: METHYLPREDNISOLONE
     Indication: PREMEDICATION
     Dosage: BASELINE (WEEK 1)?NEXT DOSE RECEIVED ON 16/OCT/2012 9WEEK 2), 19/MAR/ 2013 (WEEK 24), 03/SEP/2013 9W
     Dates: start: 20121002, end: 20121002
  19. TEZEO [Concomitant]
     Active Substance: TELMISARTAN
     Indication: HYPERTENSION
     Dates: start: 202009
  20. IBALGIN [Concomitant]
     Active Substance: IBUPROFEN
     Dates: start: 20121002
  21. CORSODYL [Concomitant]
     Active Substance: CHLORHEXIDINE GLUCONATE
     Indication: ORAL CANDIDIASIS
     Dates: start: 20210319
  22. PLACEBO [Suspect]
     Active Substance: UNSPECIFIED INGREDIENT
     Indication: RELAPSING-REMITTING MULTIPLE SCLEROSIS
     Dosage: BASELINE (WEEK 1)
     Route: 042
     Dates: start: 20121002, end: 20121002
  23. INTERFERON BETA?1A [Suspect]
     Active Substance: INTERFERON BETA-1A
     Indication: RELAPSING-REMITTING MULTIPLE SCLEROSIS
     Route: 058
     Dates: start: 20121002, end: 20121002
  24. OCRELIZUMAB. [Suspect]
     Active Substance: OCRELIZUMAB
     Dosage: OLE?WEEK 2
     Route: 042
     Dates: start: 20140826, end: 20140826
  25. OCRELIZUMAB. [Suspect]
     Active Substance: OCRELIZUMAB
     Dosage: OLE?WEEK 24
     Route: 042
     Dates: start: 20150127, end: 20150127
  26. PARACETAMOLUM [Concomitant]
     Active Substance: ACETAMINOPHEN
     Dosage: OLE?WEEK 0?NEXT DOSE RECEIVED ON: 26/AUG/2014 (WEEK 2)
     Dates: start: 20140814
  27. DEXAMED (CZECH REPUBLIC) [Concomitant]
     Dosage: 1 AMPULE
     Dates: start: 20210319, end: 20210401
  28. PARACETAMOLUM [Concomitant]
     Active Substance: ACETAMINOPHEN
     Dates: start: 20210319, end: 20210401
  29. SEFOTAK [Concomitant]
     Active Substance: CEFOTAXIME SODIUM
     Dates: start: 20210319, end: 20210401
  30. ZINKOROT [Concomitant]
     Active Substance: ZINC OROTATE
     Dates: start: 20210319, end: 20210401
  31. DESLORATADINE. [Concomitant]
     Active Substance: DESLORATADINE
     Indication: HYPERSENSITIVITY
     Dates: start: 20210319
  32. OCRELIZUMAB. [Suspect]
     Active Substance: OCRELIZUMAB
     Dosage: OLE?WEEK 216
     Route: 042
     Dates: start: 20181008, end: 20181008
  33. PLACEBO [Suspect]
     Active Substance: UNSPECIFIED INGREDIENT
     Dosage: WEEK 48
     Route: 042
     Dates: start: 20130903, end: 20130903
  34. INTERFERON BETA?1A [Suspect]
     Active Substance: INTERFERON BETA-1A
     Route: 058
     Dates: start: 20140805, end: 20140813
  35. OCRELIZUMAB. [Suspect]
     Active Substance: OCRELIZUMAB
     Dosage: OLE?WEEK 48
     Route: 042
     Dates: start: 20150714, end: 20150714
  36. BISULEPIN HYDROCHLORIDE [Concomitant]
     Active Substance: BISULEPIN HYDROCHLORIDE
     Indication: PREMEDICATION
     Dosage: BASELINE (WEEK 1)?1 TABLET
     Dates: start: 20121002
  37. PARALEN (CZECH REPUBLIC) [Concomitant]
     Dosage: OLE?WEEK 24?NEXT DOSE RECEIVED ON 14/JUL/2015, 29/DEC/2015, 13/JUN/2016, 28/NOV/2016, 15/MAY/2017, 2
     Dates: start: 20150127, end: 20150127
  38. LETROX [Concomitant]
     Active Substance: LEVOTHYROXINE SODIUM
     Indication: HYPOTHYROIDISM
     Dates: start: 2012
  39. VITAMINE C [Concomitant]
     Active Substance: ASCORBIC ACID
     Dates: start: 20210319
  40. PLACEBO [Suspect]
     Active Substance: UNSPECIFIED INGREDIENT
     Dosage: WEEK 2
     Route: 042
     Dates: start: 20121016, end: 20121016
  41. PLACEBO [Suspect]
     Active Substance: UNSPECIFIED INGREDIENT
     Dosage: WEEK 24
     Route: 042
     Dates: start: 20130319, end: 20130319
  42. OCRELIZUMAB. [Suspect]
     Active Substance: OCRELIZUMAB
     Dosage: OLE?WEEK 96
     Route: 042
     Dates: start: 20160613, end: 20160613
  43. OCRELIZUMAB. [Suspect]
     Active Substance: OCRELIZUMAB
     Dosage: OLE?WEEK 120
     Route: 042
     Dates: start: 20161128, end: 20161128
  44. OCRELIZUMAB. [Suspect]
     Active Substance: OCRELIZUMAB
     Dosage: OLE?WEEK 264
     Route: 042
     Dates: start: 20190902, end: 20190902
  45. OCRELIZUMAB. [Suspect]
     Active Substance: OCRELIZUMAB
     Dosage: OLE?WEEK 288
     Route: 042
     Dates: start: 20200220, end: 20200220
  46. OCRELIZUMAB. [Suspect]
     Active Substance: OCRELIZUMAB
     Dosage: OLE?WEEK 312
     Route: 042
     Dates: start: 20200731, end: 20200731
  47. OCRELIZUMAB. [Suspect]
     Active Substance: OCRELIZUMAB
     Dosage: OLE?WEEK 336
     Route: 042
     Dates: start: 20210118, end: 20210118
  48. DITHIADEN [Concomitant]
     Active Substance: BISULEPIN
     Indication: PREMEDICATION
     Dosage: WEEK 2?1 TABLET
     Dates: start: 20121016
  49. LINDYNETTE [Concomitant]
     Active Substance: ETHINYL ESTRADIOL\GESTODENE
     Indication: CONTRACEPTION
     Dates: start: 2008
  50. NOLPAZA [Concomitant]
     Active Substance: PANTOPRAZOLE SODIUM
     Dates: start: 20210319
  51. LEXAURIN [Concomitant]
     Active Substance: BROMAZEPAM
     Indication: PROPHYLAXIS
     Dates: start: 20210319

REACTIONS (1)
  - COVID-19 pneumonia [Recovered/Resolved]

NARRATIVE: CASE EVENT DATE: 20210301
